FAERS Safety Report 7923423-2 (Version None)
Quarter: 2011Q4

REPORT INFORMATION
  Report Type: 
  Country: None (occurrence: None)
  Receive Date: 20111117
  Receipt Date: 20110202
  Transmission Date: 20120403
  Serious: Yes (Other)
  Sender: FDA-Public Use
  Company Number: US-AMGEN-USASP2011006266

PATIENT
  Sex: Female

DRUGS (6)
  1. CELEBREX [Concomitant]
     Dosage: 100 MG, UNK
  2. AVONEX [Concomitant]
     Dosage: 30 A?G, UNK
  3. ENBREL [Suspect]
     Indication: PRODUCT USED FOR UNKNOWN INDICATION
     Dosage: 50 MG, QWK
     Route: 058
     Dates: end: 20110126
  4. GABAPENTIN [Concomitant]
     Dosage: 100 MG, UNK
  5. IBUPROFEN [Concomitant]
     Dosage: 200 MG, UNK
  6. LYRICA [Concomitant]

REACTIONS (1)
  - HYPERSENSITIVITY [None]
